FAERS Safety Report 5981112-8 (Version None)
Quarter: 2008Q4

REPORT INFORMATION
  Report Type: 
  Country: None (occurrence: None)
  Receive Date: 20081202
  Receipt Date: 20081202
  Transmission Date: 20090506
  Serious: Yes (Other)
  Sender: FDA-Public Use
  Company Number: None

PATIENT
  Age: 25 Year
  Sex: Female
  Weight: 74.3899 kg

DRUGS (1)
  1. FACTIVE [Suspect]
     Indication: UPPER RESPIRATORY TRACT INFECTION
     Dosage: 320 1XDAY PO
     Route: 048
     Dates: start: 20081115, end: 20081120

REACTIONS (3)
  - ADVERSE EVENT [None]
  - ERYTHEMA [None]
  - RASH [None]
